FAERS Safety Report 8584158-9 (Version None)
Quarter: 2012Q3

REPORT INFORMATION
  Report Type: 
  Country: None (occurrence: None)
  Receive Date: 20120810
  Receipt Date: 20120801
  Transmission Date: 20120928
  Serious: Yes (Hospitalization, Other)
  Sender: FDA-Public Use
  Company Number: NL-AMGEN-NLDSP2012049401

PATIENT
  Sex: Female

DRUGS (3)
  1. METHOTREXATE SODIUM [Concomitant]
     Dosage: UNK
  2. ENBREL [Suspect]
     Indication: PRODUCT USED FOR UNKNOWN INDICATION
     Dosage: 50 MG, WEEKLY
     Dates: start: 20100101
  3. ANALGESICS [Concomitant]
     Dosage: UNK

REACTIONS (6)
  - CONCUSSION [None]
  - FALL [None]
  - BREAST CANCER [None]
  - NON-HODGKIN'S LYMPHOMA [None]
  - OSTEOPOROSIS [None]
  - LOWER LIMB FRACTURE [None]
